FAERS Safety Report 10101919 (Version 3)
Quarter: 2014Q3

REPORT INFORMATION
  Report Type: Spontaneous
  Country: US (occurrence: US)
  Receive Date: 20140424
  Receipt Date: 20140818
  Transmission Date: 20150326
  Serious: Yes (Hospitalization, Other)
  Sender: FDA-Public Use
  Company Number: US-009507513-1404USA012644

PATIENT
  Sex: Male
  Weight: 97.51 kg

DRUGS (3)
  1. JANUVIA [Suspect]
     Active Substance: SITAGLIPTIN PHOSPHATE
     Dosage: 100 MG, BID
     Route: 048
     Dates: start: 20130114
  2. JANUMET [Suspect]
     Active Substance: METFORMIN HYDROCHLORIDE\SITAGLIPTIN PHOSPHATE
     Indication: TYPE 2 DIABETES MELLITUS
     Dosage: 50/1000 MG BID
     Route: 048
     Dates: start: 20120417, end: 20121211
  3. JANUVIA [Suspect]
     Active Substance: SITAGLIPTIN PHOSPHATE
     Indication: TYPE 2 DIABETES MELLITUS
     Dosage: 50 MG, BID
     Route: 048
     Dates: start: 20121211

REACTIONS (49)
  - Myocardial infarction [Unknown]
  - Gout [Unknown]
  - Benign prostatic hyperplasia [Unknown]
  - White blood cell count increased [Unknown]
  - Rhonchi [Unknown]
  - Ileus [Unknown]
  - Headache [Unknown]
  - Pancreatic carcinoma [Unknown]
  - Hepatic cyst [Unknown]
  - Asthenia [Unknown]
  - Cardiovascular function test abnormal [Unknown]
  - Renal failure acute [Unknown]
  - Aphagia [Unknown]
  - Chest discomfort [Unknown]
  - Diarrhoea [Unknown]
  - Myalgia [Unknown]
  - Pancreaticoduodenectomy [Unknown]
  - Pancreatitis chronic [Not Recovered/Not Resolved]
  - Bile duct stent insertion [Unknown]
  - Dupuytren^s contracture operation [Unknown]
  - Metastases to lymph nodes [Unknown]
  - Anaemia [Unknown]
  - Enteritis [Unknown]
  - Arthralgia [Unknown]
  - Adverse event [Recovered/Resolved]
  - Hyperparathyroidism [Unknown]
  - Dyspnoea exertional [Unknown]
  - Rash [Unknown]
  - Renal impairment [Unknown]
  - Renal failure chronic [Not Recovered/Not Resolved]
  - Gastrointestinal infection [Unknown]
  - Liver function test abnormal [Unknown]
  - Duodenal ulcer [Unknown]
  - Gastrointestinal disorder [Unknown]
  - Nausea [Unknown]
  - Vomiting [Unknown]
  - Cardiac failure [Unknown]
  - Duodenal stenosis [Unknown]
  - Dupuytren^s contracture [Unknown]
  - Gastrooesophageal reflux disease [Unknown]
  - Haemorrhage [Unknown]
  - Hyperlipidaemia [Unknown]
  - Fatigue [Unknown]
  - Dyspnoea [Unknown]
  - Tonsillectomy [Unknown]
  - Pyelocaliectasis [Unknown]
  - Neuropathy peripheral [Unknown]
  - Pneumonia [Unknown]
  - Back pain [Unknown]

NARRATIVE: CASE EVENT DATE: 2012
